FAERS Safety Report 13511658 (Version 1)
Quarter: 2017Q2

REPORT INFORMATION
  Report Type: Spontaneous
  Country: US (occurrence: US)
  Receive Date: 20170503
  Receipt Date: 20170503
  Transmission Date: 20170830
  Serious: No
  Sender: FDA-Public Use
  Company Number: None

PATIENT
  Age: 45 Year
  Sex: Female
  Weight: 81.72 kg

DRUGS (1)
  1. AFRIN [Suspect]
     Active Substance: OXYMETAZOLINE
     Indication: SINUS DISORDER

REACTIONS (1)
  - Anosmia [None]

NARRATIVE: CASE EVENT DATE: 20170329
